FAERS Safety Report 13880675 (Version 2)
Quarter: 2018Q2

REPORT INFORMATION
  Report Type: Spontaneous
  Country: JP (occurrence: JP)
  Receive Date: 20170818
  Receipt Date: 20180612
  Transmission Date: 20180711
  Serious: Yes (Life-Threatening, Other)
  Sender: FDA-Public Use
  Company Number: JP-ACCORD-057137

PATIENT
  Age: 75 Year
  Sex: Male

DRUGS (1)
  1. IACALL [Suspect]
     Active Substance: CISPLATIN
     Indication: HEPATOCELLULAR CARCINOMA
     Dosage: TACE TREATMENT WITH CISPLATIN (IACALL; 80 MG)

REACTIONS (4)
  - Coagulopathy [Recovering/Resolving]
  - Coagulation factor deficiency [Unknown]
  - Activated partial thromboplastin time prolonged [None]
  - Gastrointestinal haemorrhage [Unknown]
